FAERS Safety Report 5992703-2 (Version None)
Quarter: 2008Q4

REPORT INFORMATION
  Report Type: 
  Country: None (occurrence: None)
  Receive Date: 20081211
  Receipt Date: 20080528
  Transmission Date: 20090506
  Serious: No
  Sender: FDA-Public Use
  Company Number: US-AMGEN-KDL275443

PATIENT
  Sex: Female
  Weight: 65.8 kg

DRUGS (6)
  1. ENBREL [Suspect]
     Indication: RHEUMATOID ARTHRITIS
     Route: 058
     Dates: start: 20010830
  2. PLAQUENIL [Concomitant]
     Route: 048
     Dates: start: 20000101
  3. METHOTREXATE [Concomitant]
     Route: 048
     Dates: start: 20000101
  4. FOLIC ACID [Concomitant]
  5. MOTRIN [Concomitant]
  6. PRILOSEC [Concomitant]

REACTIONS (1)
  - RHEUMATOID ARTHRITIS [None]
